FAERS Safety Report 14522186 (Version 4)
Quarter: 2018Q2

REPORT INFORMATION
  Report Type: Spontaneous
  Country: IT (occurrence: IT)
  Receive Date: 20180212
  Receipt Date: 20180531
  Transmission Date: 20180711
  Serious: Yes (Hospitalization, Other)
  Sender: FDA-Public Use
  Company Number: IT-BAUSCH-BL-2018-003448

PATIENT
  Age: 74 Year
  Sex: Female

DRUGS (3)
  1. CLOZAPINE. [Suspect]
     Active Substance: CLOZAPINE
     Indication: DRUG ADMINISTRATION ERROR
     Dosage: TOTAL: 100 MG
     Route: 048
     Dates: start: 20161030, end: 20161030
  2. LORAZEPAM. [Suspect]
     Active Substance: LORAZEPAM
     Indication: DRUG ADMINISTRATION ERROR
     Dosage: IN TOTAL
     Route: 048
     Dates: start: 20161030, end: 20161030
  3. ENTACT [Suspect]
     Active Substance: ESCITALOPRAM OXALATE
     Indication: DRUG ADMINISTRATION ERROR
     Dosage: 20 MG, ONCE/SINGLE ; IN TOTAL
     Route: 048
     Dates: start: 20161030, end: 20161030

REACTIONS (4)
  - Accidental exposure to product [Recovered/Resolved]
  - Sopor [Unknown]
  - Drug administration error [Recovered/Resolved]
  - Accidental overdose [Unknown]

NARRATIVE: CASE EVENT DATE: 20161030
